FAERS Safety Report 24301961 (Version 1)
Quarter: 2024Q3

REPORT INFORMATION
  Report Type: Spontaneous
  Country: US (occurrence: None)
  Receive Date: 20240909
  Receipt Date: 20240909
  Transmission Date: 20241017
  Serious: Yes (Disabling)
  Sender: Public
  Company Number: None

PATIENT
  Age: 76 Year
  Sex: Female

DRUGS (4)
  1. KETOCONAZOLE [Suspect]
     Active Substance: KETOCONAZOLE
     Indication: Tinea cruris
     Dosage: FREQUENCY : DAILY;?
     Route: 061
     Dates: start: 20240311, end: 20240317
  2. SYNTHROID [Concomitant]
     Active Substance: LEVOTHYROXINE SODIUM
  3. SYNTHROID [Concomitant]
     Active Substance: LEVOTHYROXINE SODIUM
  4. ESTRO-GEL 0.06% [Concomitant]

REACTIONS (4)
  - Vulvovaginal swelling [None]
  - Vulvovaginal burning sensation [None]
  - Urethral disorder [None]
  - Product quality issue [None]

NARRATIVE: CASE EVENT DATE: 20240314
